FAERS Safety Report 7149304-2 (Version None)
Quarter: 2010Q4

REPORT INFORMATION
  Report Type: 
  Country: None (occurrence: None)
  Receive Date: 20101209
  Receipt Date: 20101201
  Transmission Date: 20110411
  Serious: Yes (Hospitalization)
  Sender: FDA-Public Use
  Company Number: US-BAXTER-2010BH028133

PATIENT
  Age: 36 Year
  Sex: Female
  Weight: 69 kg

DRUGS (10)
  1. ROBINUL [Suspect]
     Indication: PRODUCT USED FOR UNKNOWN INDICATION
     Route: 042
     Dates: start: 20100923, end: 20100923
  2. FENTANYL CITRATE [Suspect]
     Indication: PRODUCT USED FOR UNKNOWN INDICATION
     Route: 042
     Dates: start: 20100923, end: 20100923
  3. FENTANYL CITRATE [Suspect]
     Route: 042
     Dates: start: 20100923, end: 20100923
  4. MERIDIA [Suspect]
     Indication: WEIGHT DECREASED
     Route: 065
     Dates: start: 20100101, end: 20100920
  5. MERIDIA [Suspect]
     Indication: HEADACHE
     Route: 065
     Dates: start: 20100101, end: 20100920
  6. AXOTAL [Suspect]
     Indication: PRODUCT USED FOR UNKNOWN INDICATION
     Route: 065
     Dates: end: 20100920
  7. DEXAMETHASONE [Suspect]
     Indication: PRODUCT USED FOR UNKNOWN INDICATION
     Route: 042
     Dates: start: 20100923, end: 20100923
  8. MIDAZOLAM HYDROCHLORIDE [Suspect]
     Indication: PRODUCT USED FOR UNKNOWN INDICATION
     Route: 042
     Dates: start: 20100923, end: 20100923
  9. KETAMINE HYDROCHLORIDE [Suspect]
     Indication: PRODUCT USED FOR UNKNOWN INDICATION
     Route: 042
     Dates: start: 20100923, end: 20100923
  10. LIDOCAINE HYDROCHLORIDE [Suspect]
     Indication: PRODUCT USED FOR UNKNOWN INDICATION
     Route: 065
     Dates: start: 20100923, end: 20100923

REACTIONS (2)
  - GRAND MAL CONVULSION [None]
  - PARTIAL SEIZURES [None]
